FAERS Safety Report 14879494 (Version 1)
Quarter: 2018Q2

REPORT INFORMATION
  Report Type: Spontaneous
  Country: US (occurrence: US)
  Receive Date: 20180511
  Receipt Date: 20180511
  Transmission Date: 20180711
  Serious: No
  Sender: FDA-Public Use
  Company Number: US-PFIZER INC-2018194092

PATIENT
  Age: 46 Year
  Sex: Female

DRUGS (1)
  1. LYRICA [Suspect]
     Active Substance: PREGABALIN
     Indication: ARTHRALGIA
     Dosage: 150 MG, DAILY (50MG Q.A.M. AND 100MG Q.P.M )
     Dates: start: 201601

REACTIONS (2)
  - Product use in unapproved indication [Unknown]
  - Drug intolerance [Unknown]
